FAERS Safety Report 5398869-X (Version None)
Quarter: 2007Q3

REPORT INFORMATION
  Report Type: 
  Country: None (occurrence: None)
  Receive Date: 20070727
  Receipt Date: 20070723
  Transmission Date: 20080115
  Serious: Yes (Other)
  Sender: FDA-Public Use
  Company Number: PHBS2007JP05976

PATIENT
  Age: 69 Year
  Sex: Male

DRUGS (4)
  1. ZOMETA [Suspect]
     Indication: METASTASES TO BONE
     Dosage: 4 MG, UNK
     Route: 042
     Dates: start: 20061116, end: 20061207
  2. TS 1 [Concomitant]
     Dosage: 120 MG, UNK
     Route: 048
     Dates: start: 20060919
  3. GEMZAR [Concomitant]
     Dosage: 800 MG, UNK
     Route: 042
     Dates: start: 20070125
  4. CISPLATIN [Concomitant]
     Dosage: 40 MG, UNK
     Route: 042
     Dates: start: 20060919, end: 20070111

REACTIONS (4)
  - GINGIVAL EROSION [None]
  - GINGIVITIS [None]
  - OSTEONECROSIS [None]
  - STOMATITIS [None]
